FAERS Safety Report 9503124 (Version 1)
Quarter: 2013Q3

REPORT INFORMATION
  Report Type: Spontaneous
  Country: US (occurrence: US)
  Receive Date: 20130906
  Receipt Date: 20130906
  Transmission Date: 20140515
  Serious: Yes (Hospitalization)
  Sender: FDA-Public Use
  Company Number: US-ELI_LILLY_AND_COMPANY-US201308009270

PATIENT
  Age: 12 Year
  Sex: Male
  Weight: 69.84 kg

DRUGS (12)
  1. PROZAC [Suspect]
     Indication: AFFECTIVE DISORDER
     Dosage: 10 MG, QD
     Route: 048
     Dates: start: 20121108
  2. DESYREL [Suspect]
     Indication: AFFECTIVE DISORDER
     Dosage: 25 MG, EACH EVENING
     Dates: start: 20130108, end: 20130617
  3. DESYREL [Suspect]
     Dosage: 12.5 MG, EACH EVENING
     Route: 048
     Dates: start: 20130617
  4. CATAPRES /00171101/ [Suspect]
     Indication: AFFECTIVE DISORDER
     Dosage: 0.2 MG, EACH EVENING
     Route: 048
     Dates: start: 20120301
  5. DEPAKOTE [Suspect]
     Indication: AFFECTIVE DISORDER
     Dosage: 500 MG, BID
     Route: 048
     Dates: start: 20130617
  6. DEPAKOTE [Suspect]
     Dosage: 250 MG, TID
     Route: 048
     Dates: start: 20130621
  7. DEPAKOTE [Suspect]
     Dosage: 300 MG, BID
     Route: 048
     Dates: start: 20120301
  8. VYVANSE [Suspect]
     Indication: AFFECTIVE DISORDER
     Dosage: 40 MG, EACH MORNING
     Route: 048
     Dates: start: 20130321
  9. VYVANSE [Suspect]
     Dosage: 20 MG, QD
     Route: 048
     Dates: start: 20130402
  10. THORAZINE /00011901/ [Suspect]
     Indication: AFFECTIVE DISORDER
     Dosage: 20 MG, TID
     Route: 048
     Dates: start: 20130326
  11. THORAZINE /00011901/ [Suspect]
     Dosage: 25 MG, TID
     Route: 048
     Dates: start: 20130617
  12. MENINGOCOCCAL VACCINE [Suspect]
     Indication: IMMUNISATION
     Dosage: 1 DF, SINGLE
     Route: 030
     Dates: start: 20130409, end: 20130409

REACTIONS (2)
  - Aggression [Not Recovered/Not Resolved]
  - Affective disorder [Not Recovered/Not Resolved]
